FAERS Safety Report 11717053 (Version 3)
Quarter: 2015Q4

REPORT INFORMATION
  Report Type: Spontaneous
  Country: US (occurrence: US)
  Receive Date: 20151104
  Receipt Date: 20151120
  Transmission Date: 20160304
  Serious: No
  Sender: FDA-Public Use
  Company Number: US-ELI_LILLY_AND_COMPANY-US201108003782

PATIENT
  Sex: Female

DRUGS (5)
  1. FORTEO [Suspect]
     Active Substance: TERIPARATIDE
     Indication: OSTEOPOROSIS
     Dosage: 20 UG, QD
     Route: 065
     Dates: start: 20110725
  2. FORTEO [Suspect]
     Active Substance: TERIPARATIDE
     Dosage: 20 UG, QD
     Route: 065
     Dates: start: 201111
  3. FORTEO [Suspect]
     Active Substance: TERIPARATIDE
     Dosage: 20 UG, QD
     Route: 065
  4. FORTEO [Suspect]
     Active Substance: TERIPARATIDE
     Dosage: 20 UG, QD
     Route: 065
  5. FORTEO [Suspect]
     Active Substance: TERIPARATIDE
     Dosage: 20 UG, QD
     Route: 065

REACTIONS (18)
  - Feeling abnormal [Unknown]
  - Dizziness [Unknown]
  - Hot flush [Unknown]
  - Abdominal pain upper [Recovered/Resolved]
  - Pain in extremity [Unknown]
  - Pain [Unknown]
  - Nausea [Unknown]
  - Asthenia [Unknown]
  - Muscle spasms [Unknown]
  - Malaise [Unknown]
  - Blood calcium increased [Not Recovered/Not Resolved]
  - Blood calcium increased [Unknown]
  - Back pain [Recovered/Resolved]
  - Musculoskeletal pain [Unknown]
  - Hyperhidrosis [Unknown]
  - Arthralgia [Unknown]
  - Bone erosion [Unknown]
  - Intentional product misuse [Recovered/Resolved]
